FAERS Safety Report 4629335-4 (Version None)
Quarter: 2005Q2

REPORT INFORMATION
  Report Type: 
  Country: None (occurrence: None)
  Receive Date: 20050405
  Receipt Date: 20050328
  Transmission Date: 20051028
  Serious: Yes (Hospitalization)
  Sender: FDA-Public Use
  Company Number: 2005-BP-04789RO

PATIENT
  Age: 54 Year
  Sex: Male
  Weight: 83.9 kg

DRUGS (4)
  1. LITHIUM CARBONATE [Suspect]
     Indication: BIPOLAR DISORDER
     Dosage: 1800 MG/DAY (300 MG) PO
     Route: 048
     Dates: start: 19920101, end: 20031113
  2. TOPAMAX [Concomitant]
  3. EFFEXOR [Concomitant]
  4. SYNTHROID [Concomitant]

REACTIONS (7)
  - AMNESIA [None]
  - DEHYDRATION [None]
  - DEPRESSED LEVEL OF CONSCIOUSNESS [None]
  - DRUG LEVEL ABOVE THERAPEUTIC [None]
  - INFLUENZA [None]
  - NASOPHARYNGITIS [None]
  - THERAPEUTIC AGENT TOXICITY [None]
